FAERS Safety Report 5403168-3 (Version None)
Quarter: 2007Q3

REPORT INFORMATION
  Report Type: 
  Country: None (occurrence: None)
  Receive Date: 20070801
  Receipt Date: 20070712
  Transmission Date: 20080115
  Serious: Yes (Death, Other)
  Sender: FDA-Public Use
  Company Number: US-PFIZER INC-2006127252

PATIENT
  Sex: Male
  Weight: 63.5 kg

DRUGS (7)
  1. CELEBREX [Suspect]
     Indication: PAIN IN EXTREMITY
     Dates: start: 20020530, end: 20020818
  2. BEXTRA [Suspect]
     Indication: PAIN IN EXTREMITY
     Route: 048
  3. VIOXX [Suspect]
     Route: 048
  4. CODEINE SUL TAB [Concomitant]
  5. DEMEROL [Concomitant]
  6. MORPHINE [Concomitant]
  7. ACETAMINOPHEN [Concomitant]

REACTIONS (1)
  - MYOCARDIAL INFARCTION [None]
